FAERS Safety Report 4417118-X (Version None)
Quarter: 2004Q2

REPORT INFORMATION
  Report Type: 
  Country: None (occurrence: None)
  Receive Date: 20040628
  Receipt Date: 20040408
  Transmission Date: 20050107
  Serious: No
  Sender: FDA-Public Use
  Company Number: USA-2004-0014402

PATIENT
  Sex: Male

DRUGS (1)
  1. SPECTRACEF [Suspect]
     Indication: SKIN INFECTION

REACTIONS (4)
  - CONDITION AGGRAVATED [None]
  - ENTEROCOCCAL INFECTION [None]
  - PSEUDOMONAS INFECTION [None]
  - SKIN INFECTION [None]
